FAERS Safety Report 16038008 (Version 4)
Quarter: 2019Q2

REPORT INFORMATION
  Report Type: Report from Study
  Country: US (occurrence: US)
  Receive Date: 20190305
  Receipt Date: 20190418
  Transmission Date: 20190711
  Serious: Yes (Hospitalization)
  Sender: FDA-Public Use
  Company Number: US-ACTELION-A-US2018-181660

PATIENT
  Age: 59 Year
  Sex: Female

DRUGS (14)
  1. LITHIUM. [Concomitant]
     Active Substance: LITHIUM
     Route: 048
  2. OPSUMIT [Suspect]
     Active Substance: MACITENTAN
     Indication: PULMONARY ARTERIAL HYPERTENSION
     Dosage: 10 MG, QD
     Route: 048
     Dates: start: 20160713
  3. ALDACTONE [Concomitant]
     Active Substance: SPIRONOLACTONE
     Dosage: 25 MG
  4. ULORIC [Concomitant]
     Active Substance: FEBUXOSTAT
     Dosage: 40 MG
  5. LASIX [Concomitant]
     Active Substance: FUROSEMIDE
     Dosage: 20 MG, BID
     Route: 048
  6. VITAMIN D3 [Concomitant]
     Active Substance: CHOLECALCIFEROL
     Dosage: 1000 UNK
  7. DIGOXIN. [Concomitant]
     Active Substance: DIGOXIN
     Dosage: UNK
  8. PRILOSEC [Concomitant]
     Active Substance: OMEPRAZOLE MAGNESIUM
     Dosage: 40 MG
  9. OPSUMIT [Suspect]
     Active Substance: MACITENTAN
     Dosage: 10 MG, QD
     Route: 048
     Dates: start: 20160811
  10. SIMETHICONE (DIMETHICONE) [Concomitant]
     Active Substance: DIMETHICONE
  11. PROBIOTIC [Concomitant]
     Active Substance: PROBIOTICS NOS
  12. TADALAFIL. [Suspect]
     Active Substance: TADALAFIL
     Indication: PRODUCT USED FOR UNKNOWN INDICATION
     Dosage: 20 MG, QD
     Route: 065
  13. XANAX [Concomitant]
     Active Substance: ALPRAZOLAM
     Dosage: 0.25 MG
  14. LINZESS [Concomitant]
     Active Substance: LINACLOTIDE
     Route: 048

REACTIONS (18)
  - Pulmonary hypertension [Not Recovered/Not Resolved]
  - Aspiration pleural cavity [Unknown]
  - Pneumonia [Unknown]
  - Dyspnoea [Unknown]
  - Headache [Unknown]
  - Transplant evaluation [Unknown]
  - Product dose omission [Not Recovered/Not Resolved]
  - Pleural effusion [Unknown]
  - Hospitalisation [Unknown]
  - Condition aggravated [Unknown]
  - Dyspnoea exertional [Not Recovered/Not Resolved]
  - Oxygen saturation decreased [Unknown]
  - Loss of personal independence in daily activities [Unknown]
  - Renal cyst [Unknown]
  - Urinary tract infection [Unknown]
  - Thyroid mass [Unknown]
  - Chronic kidney disease [Unknown]
  - Pulmonary mass [Unknown]

NARRATIVE: CASE EVENT DATE: 20181102
